FAERS Safety Report 25760767 (Version 1)
Quarter: 2025Q3

REPORT INFORMATION
  Report Type: Spontaneous
  Country: EU (occurrence: EU)
  Receive Date: 20250904
  Receipt Date: 20250904
  Transmission Date: 20251020
  Serious: Yes (Hospitalization, Other)
  Sender: PFIZER
  Company Number: None

PATIENT
  Age: 31 Year
  Sex: Female
  Weight: 60 kg

DRUGS (11)
  1. RIMEGEPANT [Suspect]
     Active Substance: RIMEGEPANT
     Indication: Migraine
     Route: 048
     Dates: start: 20250520, end: 20250818
  2. ASPIRIN [Concomitant]
     Active Substance: ASPIRIN
  3. LORATADINE [Concomitant]
     Active Substance: LORATADINE
  4. SYMBICORT [Concomitant]
     Active Substance: BUDESONIDE\FORMOTEROL FUMARATE DIHYDRATE
  5. AMLODIPINE BESYLATE [Concomitant]
     Active Substance: AMLODIPINE BESYLATE
  6. CALCIFEDIOL [Concomitant]
     Active Substance: CALCIFEDIOL
  7. DEXKETOPROFEN TROMETAMOL [Concomitant]
     Active Substance: DEXKETOPROFEN TROMETAMOL
  8. MONOLITUM FLAS [Concomitant]
  9. NITROGLYCERIN [Concomitant]
     Active Substance: NITROGLYCERIN
  10. IRON PROTEINSUCCINYLATE [Concomitant]
  11. ZARATOR [ATORVASTATIN] [Concomitant]

REACTIONS (4)
  - Prinzmetal angina [Recovered/Resolved]
  - Arteriospasm coronary [Unknown]
  - Eosinophilia [Unknown]
  - Blood iron decreased [Unknown]

NARRATIVE: CASE EVENT DATE: 20250731
